FAERS Safety Report 4681211-7 (Version None)
Quarter: 2005Q2

REPORT INFORMATION
  Report Type: 
  Country: None (occurrence: None)
  Receive Date: 20050603
  Receipt Date: 20040708
  Transmission Date: 20051028
  Serious: Yes (Other)
  Sender: FDA-Public Use
  Company Number: US-ROCHE-373696

PATIENT
  Age: 28 Year
  Sex: Female

DRUGS (4)
  1. KLONOPIN [Suspect]
     Indication: PANIC DISORDER
     Route: 048
     Dates: start: 20030615, end: 20040129
  2. VALIUM [Suspect]
     Indication: ANXIETY
     Route: 048
     Dates: end: 20040115
  3. ZYPREXA [Concomitant]
  4. PAXIL [Concomitant]

REACTIONS (4)
  - DRUG EXPOSURE DURING PREGNANCY [None]
  - GESTATIONAL DIABETES [None]
  - PARANOIA [None]
  - PRE-ECLAMPSIA [None]
